FAERS Safety Report 16148803 (Version 7)
Quarter: 2025Q3

REPORT INFORMATION
  Report Type: Spontaneous
  Country: EU (occurrence: EU)
  Receive Date: 20190402
  Receipt Date: 20250807
  Transmission Date: 20251020
  Serious: Yes (Hospitalization, Disabling, Other)
  Sender: NOVARTIS
  Company Number: PHHY2019DE072957

PATIENT
  Sex: Female
  Weight: 120 kg

DRUGS (15)
  1. VALSARTAN [Suspect]
     Active Substance: VALSARTAN
     Indication: Hypertension
     Dosage: 1 DF, QD (IN THE EVENINGS)
     Route: 065
     Dates: start: 2005, end: 20180912
  2. VALSARTAN [Suspect]
     Active Substance: VALSARTAN
     Dosage: 0.5 DF, QD (IN THE EVENINGS)
     Route: 065
  3. VALSARTAN [Suspect]
     Active Substance: VALSARTAN
     Indication: Product used for unknown indication
     Dosage: 1 DF, BID
     Route: 065
  4. ANIDULAFUNGIN [Suspect]
     Active Substance: ANIDULAFUNGIN
     Indication: Product used for unknown indication
     Dosage: 100 MG, QD
     Route: 065
  5. HYDROCHLOROTHIAZIDE\VALSARTAN [Suspect]
     Active Substance: HYDROCHLOROTHIAZIDE\VALSARTAN
     Indication: Hypertension
     Dosage: 1 DF, QD (IN THE MORNINGS)
     Route: 065
     Dates: start: 2005, end: 20180912
  6. HYDROCHLOROTHIAZIDE\VALSARTAN [Suspect]
     Active Substance: HYDROCHLOROTHIAZIDE\VALSARTAN
     Dosage: 1 DF, QD (IN THE MORNINGS)
     Route: 065
     Dates: start: 201412
  7. HYDROCHLOROTHIAZIDE\VALSARTAN [Suspect]
     Active Substance: HYDROCHLOROTHIAZIDE\VALSARTAN
     Dosage: 1 DF, QD (IN THE MORNINGS)
     Route: 065
  8. TAZOBACTAM [Suspect]
     Active Substance: TAZOBACTAM
     Indication: Product used for unknown indication
     Route: 065
     Dates: start: 20161128, end: 20161214
  9. VANCOMYCIN [Suspect]
     Active Substance: VANCOMYCIN
     Indication: Product used for unknown indication
     Dosage: 1 G, TID (1-1-1)
     Route: 065
     Dates: start: 20161209, end: 20161214
  10. AMLODIPINE [Concomitant]
     Active Substance: AMLODIPINE BESYLATE
     Indication: Product used for unknown indication
     Dosage: 5 MG, BID (IN THE MORNING AND EVENING)
     Route: 065
     Dates: start: 2005
  11. VALSARTAN AND HYDROCHLOROTHIAZIDE [Concomitant]
     Active Substance: HYDROCHLOROTHIAZIDE\VALSARTAN
     Indication: Product used for unknown indication
     Dosage: 1 DF, QD (IN THE MORNINGS)
     Route: 065
     Dates: start: 20170331
  12. NEBIVOLOL [Concomitant]
     Active Substance: NEBIVOLOL
     Indication: Product used for unknown indication
     Dosage: 5 MG, QD (IN THE EVENINGS)
     Route: 065
     Dates: start: 2012
  13. ASPIRIN [Concomitant]
     Active Substance: ASPIRIN
     Indication: Product used for unknown indication
     Route: 065
     Dates: start: 2009, end: 2011
  14. VALSARTAN [Concomitant]
     Active Substance: VALSARTAN
     Indication: Product used for unknown indication
     Route: 065
  15. NALOXONE HYDROCHLORIDE\OXYCODONE HYDROCHLORIDE [Concomitant]
     Active Substance: NALOXONE HYDROCHLORIDE\OXYCODONE HYDROCHLORIDE
     Indication: Product used for unknown indication
     Dosage: UNK, BID (10/5 MG) (1-0-1)
     Route: 065

REACTIONS (52)
  - Ovarian cancer [Recovered/Resolved with Sequelae]
  - Abdominal pain [Unknown]
  - Weight decreased [Unknown]
  - Procedural pain [Unknown]
  - Perforation [Unknown]
  - Peritonitis [Unknown]
  - Abdominal wound dehiscence [Unknown]
  - Pulmonary embolism [Unknown]
  - Deep vein thrombosis [Unknown]
  - Dyspnoea exertional [Unknown]
  - Fatigue [Unknown]
  - General physical health deterioration [Unknown]
  - Malignant peritoneal neoplasm [Unknown]
  - Polyneuropathy [Unknown]
  - Leukopenia [Unknown]
  - Thrombocytopenia [Unknown]
  - Hypokalaemia [Unknown]
  - Acute kidney injury [Unknown]
  - Hydronephrosis [Unknown]
  - Hypochromic anaemia [Unknown]
  - Iron deficiency anaemia [Unknown]
  - Vitamin B12 decreased [Unknown]
  - Hepatic cyst [Unknown]
  - Scar pain [Unknown]
  - Pain in extremity [Unknown]
  - Nocturia [Unknown]
  - Dysuria [Unknown]
  - Renal cyst [Unknown]
  - Atelectasis [Unknown]
  - Spinal disorder [Unknown]
  - Diverticulum intestinal [Unknown]
  - Blood sodium increased [Unknown]
  - Blood calcium decreased [Unknown]
  - Blood creatinine decreased [Unknown]
  - Blood urea decreased [Unknown]
  - C-reactive protein increased [Unknown]
  - Haemoglobin decreased [Unknown]
  - Red blood cell count decreased [Unknown]
  - White blood cell count increased [Unknown]
  - Platelet count increased [Unknown]
  - Mean cell volume decreased [Unknown]
  - Mean cell haemoglobin decreased [Unknown]
  - Haematocrit decreased [Unknown]
  - Red cell distribution width increased [Unknown]
  - Prothrombin time prolonged [Unknown]
  - Blood albumin decreased [Unknown]
  - Blood lactate dehydrogenase increased [Unknown]
  - Headache [Unknown]
  - Blood potassium decreased [Unknown]
  - Alanine aminotransferase increased [Unknown]
  - Aspartate aminotransferase increased [Unknown]
  - Blood glucose increased [Unknown]

NARRATIVE: CASE EVENT DATE: 20070101
